FAERS Safety Report 21962996 (Version 1)
Quarter: 2023Q1

REPORT INFORMATION
  Report Type: Spontaneous
  Country: FR (occurrence: FR)
  Receive Date: 20230207
  Receipt Date: 20230207
  Transmission Date: 20230418
  Serious: Yes (Hospitalization)
  Sender: FDA-Public Use
  Company Number: None

PATIENT
  Age: 58 Year
  Sex: Female
  Weight: 57 kg

DRUGS (6)
  1. BEVACIZUMAB [Suspect]
     Active Substance: BEVACIZUMAB
     Indication: Ovarian cancer stage IV
     Dosage: 1 CURE/21JRS
     Route: 065
     Dates: start: 202105, end: 202210
  2. CARBOPLATIN [Suspect]
     Active Substance: CARBOPLATIN
     Indication: Ovarian cancer stage IV
     Dosage: 1 CURE/21JRS
     Route: 065
     Dates: start: 202105, end: 202108
  3. LYNPARZA [Suspect]
     Active Substance: OLAPARIB
     Indication: Ovarian cancer stage IV
     Route: 065
     Dates: start: 20220330, end: 20221019
  4. LYNPARZA [Suspect]
     Active Substance: OLAPARIB
     Route: 065
     Dates: start: 20211014, end: 20211209
  5. LYNPARZA [Suspect]
     Active Substance: OLAPARIB
     Route: 065
     Dates: start: 20220105, end: 20220215
  6. PACLITAXEL [Suspect]
     Active Substance: PACLITAXEL
     Indication: Ovarian cancer stage IV
     Dosage: 1 CURE/21JRS
     Route: 065
     Dates: start: 202105, end: 202108

REACTIONS (1)
  - Myelodysplastic syndrome [Not Recovered/Not Resolved]

NARRATIVE: CASE EVENT DATE: 20221014
